FAERS Safety Report 7374114-0 (Version None)
Quarter: 2011Q1

REPORT INFORMATION
  Report Type: 
  Country: None (occurrence: None)
  Receive Date: 20110325
  Receipt Date: 20110225
  Transmission Date: 20110831
  Serious: No
  Sender: FDA-Public Use
  Company Number: US-B.I. PHARMACEUTICALS,INC./RIDGEFIELD-2011-BP-07028BP

PATIENT
  Sex: Male

DRUGS (7)
  1. FLOMAX [Concomitant]
  2. PRADAXA [Suspect]
     Indication: CEREBROVASCULAR ACCIDENT PROPHYLAXIS
  3. PRADAXA [Suspect]
     Indication: ATRIAL FIBRILLATION
     Dosage: 300 MG
     Route: 048
     Dates: start: 20110101
  4. OMEPRAZOLE [Concomitant]
  5. SIMVASTATIN [Concomitant]
  6. MULTAQ [Concomitant]
  7. MALIC (GENERIC) [Concomitant]

REACTIONS (3)
  - PAIN IN EXTREMITY [None]
  - CONTUSION [None]
  - DIARRHOEA [None]
